FAERS Safety Report 17482580 (Version 1)
Quarter: 2020Q1

REPORT INFORMATION
  Report Type: Spontaneous
  Country: EG (occurrence: EG)
  Receive Date: 20200302
  Receipt Date: 20200302
  Transmission Date: 20200409
  Serious: Yes (Hospitalization, Other)
  Sender: FDA-Public Use
  Company Number: EG-PFIZER INC-2020085811

PATIENT
  Sex: Male

DRUGS (6)
  1. PERFALGAN [Suspect]
     Active Substance: ACETAMINOPHEN
     Indication: ANTIPYRESIS
  2. MERONEM [Suspect]
     Active Substance: MEROPENEM
     Indication: ANTIBIOTIC THERAPY
     Dosage: 1 G, UNK
     Route: 042
     Dates: start: 20200108, end: 20200108
  3. PERFALGAN [Suspect]
     Active Substance: ACETAMINOPHEN
     Indication: ANALGESIC THERAPY
     Dosage: 1 G, UNK
     Route: 041
     Dates: start: 20200106, end: 20200111
  4. TAZOCIN [Suspect]
     Active Substance: PIPERACILLIN SODIUM\TAZOBACTAM SODIUM
     Indication: ANTIBIOTIC THERAPY
     Dosage: 4.5 G, UNK
     Dates: start: 20200107, end: 20200111
  5. TAVANIC [Suspect]
     Active Substance: LEVOFLOXACIN
     Indication: ANTIBIOTIC THERAPY
     Dosage: 750 MG, UNK
     Route: 042
     Dates: start: 20200108, end: 20200108
  6. EPANUTIN [Suspect]
     Active Substance: PHENYTOIN SODIUM
     Indication: EPILEPSY
     Dosage: 100 MG, UNK
     Route: 042
     Dates: start: 20200106, end: 20200111

REACTIONS (3)
  - International normalised ratio increased [Recovered/Resolved]
  - Thrombocytosis [Recovered/Resolved]
  - Hepatic enzyme increased [Recovered/Resolved]

NARRATIVE: CASE EVENT DATE: 20200107
